FAERS Safety Report 23331651 (Version 1)
Quarter: 2023Q4

REPORT INFORMATION
  Report Type: Spontaneous
  Country: US (occurrence: None)
  Receive Date: 20231222
  Receipt Date: 20231222
  Transmission Date: 20240110
  Serious: Yes (unspecified)
  Sender: FDA-Public Use
  Company Number: None

PATIENT
  Age: 57 Year
  Sex: Female
  Weight: 103.5 kg

DRUGS (5)
  1. MOUNJARO [Suspect]
     Active Substance: TIRZEPATIDE
     Indication: Diabetes mellitus
     Dosage: OTHER QUANTITY : 12 INJECTION(S);?OTHER FREQUENCY : ONCE A WEEK;?
     Route: 058
     Dates: start: 20230713, end: 20231030
  2. MOUNJARO [Suspect]
     Active Substance: TIRZEPATIDE
     Indication: Weight decreased
  3. Olmesartan  Medoximil [Concomitant]
  4. HERBALS\TURMERIC [Concomitant]
     Active Substance: HERBALS\TURMERIC
  5. ALEVE [Concomitant]
     Active Substance: NAPROXEN SODIUM

REACTIONS (12)
  - Hypoaesthesia [None]
  - Pain of skin [None]
  - Pain in extremity [None]
  - Joint swelling [None]
  - Gait disturbance [None]
  - Pain [None]
  - Neuropathy peripheral [None]
  - Arthralgia [None]
  - Joint swelling [None]
  - Muscular weakness [None]
  - Injection site bruising [None]
  - Injection site swelling [None]

NARRATIVE: CASE EVENT DATE: 20230913
